FAERS Safety Report 24572072 (Version 1)
Quarter: 2024Q4

REPORT INFORMATION
  Report Type: Other
  Country: CA (occurrence: CA)
  Receive Date: 20241101
  Receipt Date: 20241101
  Transmission Date: 20250114
  Serious: Yes (Other)
  Sender: PFIZER
  Company Number: CA-PFIZER INC-202400289978

PATIENT
  Age: 61 Year
  Sex: Male

DRUGS (1)
  1. ADALIMUMAB [Suspect]
     Active Substance: ADALIMUMAB
     Indication: Hidradenitis
     Dosage: UNK
     Route: 065

REACTIONS (1)
  - Paradoxical psoriasis [Recovered/Resolved]
